FAERS Safety Report 16938626 (Version 1)
Quarter: 2019Q4

REPORT INFORMATION
  Report Type: Spontaneous
  Country: US (occurrence: US)
  Receive Date: 20190827
  Receipt Date: 20190827
  Transmission Date: 20200122
  Serious: Yes (Disabling, Other)
  Sender: FDA-Public Use
  Company Number: None

PATIENT
  Age: 62 Year
  Sex: Male
  Weight: 86.18 kg

DRUGS (2)
  1. MULTIHANCE [Suspect]
     Active Substance: GADOBENATE DIMEGLUMINE
     Indication: SCAN WITH CONTRAST
     Dosage: ?          OTHER FREQUENCY:7 MRI^S W/CONTRAST;?
     Route: 042
     Dates: start: 20150202, end: 20180118
  2. MULTIHANCE [Suspect]
     Active Substance: GADOBENATE DIMEGLUMINE
     Indication: MAGNETIC RESONANCE IMAGING
     Dosage: ?          OTHER FREQUENCY:7 MRI^S W/CONTRAST;?
     Route: 042
     Dates: start: 20150202, end: 20180118

REACTIONS (3)
  - Anger [None]
  - Drug clearance decreased [None]
  - Quality of life decreased [None]

NARRATIVE: CASE EVENT DATE: 20160202
